FAERS Safety Report 15698679 (Version 1)
Quarter: 2018Q4

REPORT INFORMATION
  Report Type: Report from Study
  Country: US (occurrence: US)
  Receive Date: 20181207
  Receipt Date: 20181207
  Transmission Date: 20190205
  Serious: Yes (Hospitalization)
  Sender: FDA-Public Use
  Company Number: US-GILEAD-2018-0378788

PATIENT
  Age: 54 Year
  Sex: Female

DRUGS (23)
  1. AMBRISENTAN [Suspect]
     Active Substance: AMBRISENTAN
     Indication: CONNECTIVE TISSUE DISORDER
  2. ADCIRCA [Concomitant]
     Active Substance: TADALAFIL
  3. VITAMIN D3 [Concomitant]
     Active Substance: CHOLECALCIFEROL
  4. BUMEX [Concomitant]
     Active Substance: BUMETANIDE
  5. SPIRONOLACTONE. [Concomitant]
     Active Substance: SPIRONOLACTONE
  6. ALLOPURINOL. [Concomitant]
     Active Substance: ALLOPURINOL
  7. POTASSIUM CHLORIDE [POTASSIUM CHLORIDE;RIBOFLAVIN SODIUM PHOSPHATE] [Concomitant]
  8. WARFARIN [Concomitant]
     Active Substance: WARFARIN
  9. AMBRISENTAN [Suspect]
     Active Substance: AMBRISENTAN
     Indication: PULMONARY ARTERIAL HYPERTENSION
     Dosage: 10 MG, QD
     Route: 048
     Dates: start: 201110
  10. DOXYCYCLINE. [Concomitant]
     Active Substance: DOXYCYCLINE
  11. VENTOLIN HFA [Concomitant]
     Active Substance: ALBUTEROL SULFATE
  12. QVAR [Concomitant]
     Active Substance: BECLOMETHASONE DIPROPIONATE
  13. MUCINEX [Concomitant]
     Active Substance: GUAIFENESIN
  14. OXYGEN. [Concomitant]
     Active Substance: OXYGEN
  15. CARVEDILOL. [Concomitant]
     Active Substance: CARVEDILOL
  16. LIPITOR [Concomitant]
     Active Substance: ATORVASTATIN CALCIUM
  17. METFORMIN [Concomitant]
     Active Substance: METFORMIN HYDROCHLORIDE
  18. TYLENOL [Concomitant]
     Active Substance: ACETAMINOPHEN
  19. OMEPRAZOLE. [Concomitant]
     Active Substance: OMEPRAZOLE
  20. FLONASE [Concomitant]
     Active Substance: FLUTICASONE PROPIONATE
  21. NORTRIPTYLINE [Concomitant]
     Active Substance: NORTRIPTYLINE
  22. AMBRISENTAN [Suspect]
     Active Substance: AMBRISENTAN
     Indication: HEART DISEASE CONGENITAL
  23. ASCORBIC ACID. [Concomitant]
     Active Substance: ASCORBIC ACID

REACTIONS (2)
  - Upper respiratory tract infection [Unknown]
  - Acute sinusitis [Unknown]
